FAERS Safety Report 26030693 (Version 1)
Quarter: 2025Q4

REPORT INFORMATION
  Report Type: Spontaneous
  Country: EU (occurrence: EU)
  Receive Date: 20251112
  Receipt Date: 20251112
  Transmission Date: 20260117
  Serious: Yes (Hospitalization, Other)
  Sender: NOVAST LABORATORIES LTD
  Company Number: EU-NOVAST LABORATORIES INC.-2025NOV000299

PATIENT
  Age: 77 Year
  Sex: Female

DRUGS (3)
  1. GEMCITABINE HYDROCHLORIDE [Suspect]
     Active Substance: GEMCITABINE HYDROCHLORIDE
     Indication: Gallbladder adenocarcinoma
     Dosage: UNK
     Route: 065
     Dates: start: 202404
  2. CISPLATIN [Concomitant]
     Active Substance: CISPLATIN
     Indication: Gallbladder adenocarcinoma
     Dosage: UNK
     Route: 065
     Dates: start: 202404
  3. DURVALUMAB [Concomitant]
     Active Substance: DURVALUMAB
     Indication: Gallbladder adenocarcinoma
     Dosage: UNK
     Route: 065
     Dates: start: 202404

REACTIONS (5)
  - Malignant hypertension [Not Recovered/Not Resolved]
  - Multiple organ dysfunction syndrome [Not Recovered/Not Resolved]
  - Scleroderma renal crisis [Not Recovered/Not Resolved]
  - Thrombotic microangiopathy [Not Recovered/Not Resolved]
  - Product use in unapproved indication [Unknown]

NARRATIVE: CASE EVENT DATE: 20241001
